FAERS Safety Report 14487118 (Version 1)
Quarter: 2018Q1

REPORT INFORMATION
  Report Type: Report from Study
  Country: US (occurrence: US)
  Receive Date: 20180205
  Receipt Date: 20180205
  Transmission Date: 20180509
  Serious: No
  Sender: FDA-Public Use
  Company Number: US-AMGEN-USASL2017118250

PATIENT
  Age: 71 Year
  Sex: Male

DRUGS (2)
  1. NEULASTA [Suspect]
     Active Substance: PEGFILGRASTIM
     Indication: PROSTATE CANCER
  2. NEULASTA [Suspect]
     Active Substance: PEGFILGRASTIM
     Indication: BONE CANCER
     Dosage: UNK
     Route: 065

REACTIONS (1)
  - Off label use [Unknown]
